FAERS Safety Report 12875099 (Version 1)
Quarter: 2016Q4

REPORT INFORMATION
  Report Type: Spontaneous
  Country: TW (occurrence: TW)
  Receive Date: 20161023
  Receipt Date: 20161023
  Transmission Date: 20170207
  Serious: Yes (Hospitalization, Other)
  Sender: FDA-Public Use
  Company Number: TW-MYLANLABS-2016M1044963

PATIENT

DRUGS (9)
  1. CLOZAPINE. [Suspect]
     Active Substance: CLOZAPINE
     Dosage: 150 MG, QD
     Route: 048
     Dates: end: 19961214
  2. LITHIUM. [Interacting]
     Active Substance: LITHIUM
     Indication: BIPOLAR DISORDER
     Dosage: 600 MG, QD
     Dates: start: 19961211, end: 19961214
  3. LITHIUM. [Interacting]
     Active Substance: LITHIUM
     Dosage: 300 MG, QD
  4. CLOZAPINE. [Suspect]
     Active Substance: CLOZAPINE
     Indication: BIPOLAR DISORDER
     Dosage: 50 MG, QD
     Route: 048
     Dates: start: 19961203
  5. CLOZAPINE. [Suspect]
     Active Substance: CLOZAPINE
     Dosage: 200 MG, QD
     Route: 048
     Dates: start: 19970213
  6. LITHIUM. [Interacting]
     Active Substance: LITHIUM
     Dosage: 600 MG, QD
     Dates: start: 19961211, end: 19961214
  7. LITHIUM. [Interacting]
     Active Substance: LITHIUM
     Dosage: 300 MG, QD
     Dates: start: 19970213
  8. LITHIUM. [Interacting]
     Active Substance: LITHIUM
     Dosage: 450 MG, QD
  9. CLOZAPINE. [Suspect]
     Active Substance: CLOZAPINE
     Dosage: 300 MG, QD
     Route: 048

REACTIONS (10)
  - Dyskinesia [Recovered/Resolved]
  - Gait disturbance [Unknown]
  - Drug interaction [Recovered/Resolved]
  - Ataxia [Recovered/Resolved]
  - Hyperreflexia [Recovered/Resolved]
  - Product use issue [Unknown]
  - Neurotoxicity [Recovered/Resolved]
  - Myoclonus [Recovered/Resolved]
  - Mania [Recovered/Resolved]
  - Tremor [Recovered/Resolved]

NARRATIVE: CASE EVENT DATE: 19991214
